FAERS Safety Report 20511647 (Version 3)
Quarter: 2022Q2

REPORT INFORMATION
  Report Type: Other
  Country: CA (occurrence: CA)
  Receive Date: 20220224
  Receipt Date: 20220413
  Transmission Date: 20220720
  Serious: Yes (Hospitalization, Other)
  Sender: FDA-Public Use
  Company Number: CA-ROCHE-3026795

PATIENT
  Age: 63 Year
  Sex: Female
  Weight: 95 kg

DRUGS (21)
  1. XOLAIR [Suspect]
     Active Substance: OMALIZUMAB
     Indication: Asthma
     Route: 058
     Dates: start: 20090428
  2. XOLAIR [Suspect]
     Active Substance: OMALIZUMAB
     Route: 058
     Dates: start: 20090428, end: 20150908
  3. XOLAIR [Suspect]
     Active Substance: OMALIZUMAB
     Route: 058
     Dates: start: 20090930
  4. XOLAIR [Suspect]
     Active Substance: OMALIZUMAB
     Dosage: UNK
     Route: 058
     Dates: start: 20130910
  5. XOLAIR [Suspect]
     Active Substance: OMALIZUMAB
     Dosage: UNK
     Route: 058
     Dates: start: 20131022
  6. XOLAIR [Suspect]
     Active Substance: OMALIZUMAB
     Dosage: UNK
     Route: 058
     Dates: start: 20140128
  7. XOLAIR [Suspect]
     Active Substance: OMALIZUMAB
     Dosage: UNK
     Route: 058
     Dates: start: 20140422
  8. XOLAIR [Suspect]
     Active Substance: OMALIZUMAB
     Dosage: UNK
     Route: 058
     Dates: start: 20141204
  9. XOLAIR [Suspect]
     Active Substance: OMALIZUMAB
     Route: 058
     Dates: start: 20170302
  10. XOLAIR [Suspect]
     Active Substance: OMALIZUMAB
     Dosage: UNK
     Route: 058
     Dates: start: 20171109
  11. XOLAIR [Suspect]
     Active Substance: OMALIZUMAB
     Route: 058
     Dates: start: 20180927
  12. XOLAIR [Suspect]
     Active Substance: OMALIZUMAB
     Route: 058
     Dates: start: 20181213
  13. XOLAIR [Suspect]
     Active Substance: OMALIZUMAB
     Route: 058
  14. XOLAIR [Suspect]
     Active Substance: OMALIZUMAB
     Route: 058
     Dates: start: 201911
  15. XOLAIR [Suspect]
     Active Substance: OMALIZUMAB
     Dosage: UNK
     Route: 065
     Dates: start: 20210414
  16. XOLAIR [Suspect]
     Active Substance: OMALIZUMAB
     Route: 058
  17. XOLAIR [Suspect]
     Active Substance: OMALIZUMAB
     Route: 058
  18. MONTELUKAST [Concomitant]
     Active Substance: MONTELUKAST SODIUM
  19. SYMBICORT [Concomitant]
     Active Substance: BUDESONIDE\FORMOTEROL FUMARATE DIHYDRATE
  20. SINGULAIR [Concomitant]
     Active Substance: MONTELUKAST SODIUM
  21. THEOPHYLLINE [Concomitant]
     Active Substance: THEOPHYLLINE

REACTIONS (46)
  - Pulmonary embolism [Unknown]
  - Pulmonary congestion [Unknown]
  - Lower respiratory tract infection [Unknown]
  - Pulmonary embolism [Recovered/Resolved]
  - Contusion [Unknown]
  - Haematoma [Unknown]
  - Condition aggravated [Unknown]
  - Vaccination site pain [Unknown]
  - Asthma [Unknown]
  - Sputum discoloured [Unknown]
  - White blood cell count decreased [Unknown]
  - Perfume sensitivity [Unknown]
  - Sinus disorder [Unknown]
  - Middle insomnia [Unknown]
  - Malaise [Unknown]
  - Headache [Not Recovered/Not Resolved]
  - Monocyte count increased [Unknown]
  - Obstructive airways disorder [Recovering/Resolving]
  - Mean cell volume increased [Unknown]
  - Lymphocyte count decreased [Unknown]
  - Dyspnoea [Unknown]
  - Dyspnoea exertional [Unknown]
  - Urinary tract infection [Unknown]
  - Oropharyngeal pain [Unknown]
  - Weight decreased [Unknown]
  - Blood immunoglobulin E increased [Unknown]
  - Weight increased [Unknown]
  - Gamma-glutamyltransferase increased [Unknown]
  - Fall [Unknown]
  - Forced expiratory volume decreased [Unknown]
  - Ocular hyperaemia [Unknown]
  - Cough [Unknown]
  - Nasopharyngitis [Recovering/Resolving]
  - Orthostatic hypotension [Unknown]
  - Rhinorrhoea [Unknown]
  - Chronic obstructive pulmonary disease [Unknown]
  - Upper respiratory tract infection [Unknown]
  - Body temperature decreased [Unknown]
  - Sinus headache [Unknown]
  - Blood pressure systolic increased [Not Recovered/Not Resolved]
  - Asthma-chronic obstructive pulmonary disease overlap syndrome [Unknown]
  - Balance disorder [Unknown]
  - Blood alkaline phosphatase increased [Unknown]
  - Nausea [Unknown]
  - Wrong technique in product usage process [Unknown]
  - Product dose omission issue [Unknown]

NARRATIVE: CASE EVENT DATE: 20130910
